FAERS Safety Report 5910032-X (Version None)
Quarter: 2008Q4

REPORT INFORMATION
  Report Type: 
  Country: None (occurrence: None)
  Receive Date: 20081007
  Receipt Date: 20070928
  Transmission Date: 20090506
  Serious: No
  Sender: FDA-Public Use
  Company Number: US-ASTRAZENECA-2007UW16240

PATIENT
  Age: 81 Year
  Sex: Female
  Weight: 95.5 kg

DRUGS (1)
  1. ARIMIDEX [Suspect]
     Indication: BREAST CANCER STAGE II
     Route: 048
     Dates: start: 20070101

REACTIONS (2)
  - ALOPECIA [None]
  - SKIN DISCOLOURATION [None]
